FAERS Safety Report 15740558 (Version 2)
Quarter: 2019Q1

REPORT INFORMATION
  Report Type: Spontaneous
  Country: GB (occurrence: GB)
  Receive Date: 20181219
  Receipt Date: 20190226
  Transmission Date: 20190417
  Serious: Yes (Hospitalization)
  Sender: FDA-Public Use
  Company Number: PHHY2018GB189291

PATIENT
  Age: 73 Year
  Sex: Male

DRUGS (3)
  1. FLUCLOXACILLIN [Concomitant]
     Active Substance: FLUCLOXACILLIN
     Indication: WOUND INFECTION
     Dosage: UNK
     Route: 065
  2. FUSIDIC ACID [Suspect]
     Active Substance: FUSIDIC ACID
     Indication: WOUND INFECTION
     Dosage: UNK
     Route: 065
  3. ATORVASTATIN [Suspect]
     Active Substance: ATORVASTATIN
     Indication: PRODUCT USED FOR UNKNOWN INDICATION
     Dosage: 80 MG, UNK
     Route: 065

REACTIONS (4)
  - Labelled drug-drug interaction medication error [Unknown]
  - Chromaturia [Unknown]
  - Rhabdomyolysis [Unknown]
  - Myalgia [Unknown]
